FAERS Safety Report 10560422 (Version 1)
Quarter: 2014Q4

REPORT INFORMATION
  Report Type: Spontaneous
  Country: US (occurrence: US)
  Receive Date: 20141103
  Receipt Date: 20141103
  Transmission Date: 20150529
  Serious: No
  Sender: FDA-Public Use
  Company Number: US-009507513-1410USA013932

PATIENT
  Sex: Female

DRUGS (1)
  1. PROVENTIL [Suspect]
     Active Substance: ALBUTEROL
     Indication: ASTHMA
     Dosage: 440 MICROGRAM/TWICE DAILY
     Route: 055
     Dates: start: 201210

REACTIONS (2)
  - Product quality issue [Unknown]
  - Drug dose omission [Unknown]
